FAERS Safety Report 21839011 (Version 1)
Quarter: 2023Q1

REPORT INFORMATION
  Report Type: Spontaneous
  Country: US (occurrence: None)
  Receive Date: 20230108
  Receipt Date: 20230108
  Transmission Date: 20230417
  Serious: Yes (unspecified)
  Sender: FDA-Public Use
  Company Number: None

PATIENT
  Age: 81 Year
  Sex: Male
  Weight: 97 kg

DRUGS (1)
  1. PEMBROLIZUMAB [Suspect]
     Active Substance: PEMBROLIZUMAB
     Dosage: 600 MG; FREQUENCY OTHER; ROUTE IV
     Route: 042
     Dates: start: 20211104, end: 20221110

REACTIONS (6)
  - Meningitis aseptic [None]
  - Encephalopathy [None]
  - Decreased appetite [None]
  - Magnetic resonance imaging head abnormal [None]
  - Weight decreased [None]
  - Hypersomnia [None]

NARRATIVE: CASE EVENT DATE: 20221106
